FAERS Safety Report 6843360-4 (Version None)
Quarter: 2010Q3

REPORT INFORMATION
  Report Type: 
  Country: None (occurrence: None)
  Receive Date: 20100712
  Receipt Date: 20100629
  Transmission Date: 20110219
  Serious: Yes (Other)
  Sender: FDA-Public Use
  Company Number: 20108661

PATIENT
  Sex: Male

DRUGS (1)
  1. LIORESAL [Suspect]
     Indication: MUSCLE SPASTICITY
     Dosage: 661-100 MCG, DAILY, INTRATHECAL
     Route: 037

REACTIONS (6)
  - DEVICE DISLOCATION [None]
  - INCORRECT DOSE ADMINISTERED [None]
  - INFECTION [None]
  - MEDICAL DEVICE SITE REACTION [None]
  - STAPHYLOCOCCUS TEST POSITIVE [None]
  - WOUND [None]
